FAERS Safety Report 4635462-8 (Version None)
Quarter: 2005Q2

REPORT INFORMATION
  Report Type: 
  Country: None (occurrence: None)
  Receive Date: 20050413
  Receipt Date: 20050330
  Transmission Date: 20051028
  Serious: Yes (Hospitalization)
  Sender: FDA-Public Use
  Company Number: VIS10190.2005

PATIENT
  Age: 50 Year
  Sex: Male

DRUGS (2)
  1. VISICOL [Suspect]
     Indication: COLONOSCOPY
     Dosage: 30 G ONCE PO
     Route: 048
     Dates: start: 20050207, end: 20050207
  2. DULCOLAX [Suspect]
     Indication: COLONOSCOPY
     Dosage: 20 MG BID PO
     Route: 048
     Dates: start: 20050207, end: 20050207

REACTIONS (6)
  - BLOOD ELECTROLYTES ABNORMAL [None]
  - DEHYDRATION [None]
  - HEART RATE INCREASED [None]
  - HYPOVOLAEMIA [None]
  - PROCEDURAL COMPLICATION [None]
  - SINUS TACHYCARDIA [None]
